FAERS Safety Report 21540120 (Version 2)
Quarter: 2022Q4

REPORT INFORMATION
  Report Type: Report from Study
  Country: AU (occurrence: None)
  Receive Date: 20221102
  Receipt Date: 20221116
  Transmission Date: 20230113
  Serious: Yes (Hospitalization)
  Sender: FDA-Public Use
  Company Number: AU-ROCHE-3209742

PATIENT
  Age: 67 Year
  Sex: Male
  Weight: 69 kg

DRUGS (3)
  1. RITUXIMAB [Suspect]
     Active Substance: RITUXIMAB
     Indication: Lymphoma
     Route: 041
     Dates: start: 20220908
  2. LENALIDOMIDE [Suspect]
     Active Substance: LENALIDOMIDE
     Indication: Lymphoma
     Route: 048
     Dates: start: 20220908
  3. TAFASITAMAB-CXIX [Suspect]
     Active Substance: TAFASITAMAB-CXIX
     Indication: Lymphoma
     Route: 042
     Dates: start: 20220908

REACTIONS (1)
  - Tumour flare [Recovered/Resolved]

NARRATIVE: CASE EVENT DATE: 20220914
